FAERS Safety Report 17926231 (Version 4)
Quarter: 2022Q1

REPORT INFORMATION
  Report Type: Report from Study
  Country: DE (occurrence: DE)
  Receive Date: 20200623
  Receipt Date: 20220214
  Transmission Date: 20220424
  Serious: Yes (Death, Hospitalization, Other)
  Sender: FDA-Public Use
  Company Number: DE-BRISTOL-MYERS SQUIBB COMPANY-BMS-2020-048746

PATIENT
  Age: 44 Year
  Sex: Male
  Weight: 95 kg

DRUGS (8)
  1. NIVOLUMAB [Suspect]
     Active Substance: NIVOLUMAB
     Indication: Malignant melanoma
     Dosage: 285 MILLIGRAM, Q2WK
     Route: 042
     Dates: start: 20180723, end: 20181217
  2. NIVOLUMAB [Suspect]
     Active Substance: NIVOLUMAB
     Indication: Lung neoplasm malignant
     Dosage: 95 MILLIGRAM, Q2WK
     Route: 042
     Dates: start: 20200213
  3. NIVOLUMAB [Suspect]
     Active Substance: NIVOLUMAB
     Dosage: 95 MILLIGRAM, Q2WK
     Route: 042
     Dates: start: 20200320
  4. NIVOLUMAB [Suspect]
     Active Substance: NIVOLUMAB
     Dosage: 95 MILLIGRAM, Q2WK
     Route: 042
     Dates: start: 20200421, end: 20200512
  5. IPILIMUMAB [Suspect]
     Active Substance: IPILIMUMAB
     Indication: Malignant melanoma
     Dosage: 285 MILLIGRAM
     Route: 042
     Dates: start: 20200213
  6. IPILIMUMAB [Suspect]
     Active Substance: IPILIMUMAB
     Indication: Lung neoplasm malignant
     Dosage: 285 MILLIGRAM, Q2WK
     Route: 042
     Dates: start: 20200320
  7. IPILIMUMAB [Suspect]
     Active Substance: IPILIMUMAB
     Dosage: 285 MILLIGRAM, Q2WK
     Route: 042
     Dates: start: 20200421, end: 20200512
  8. FENTANYL [Concomitant]
     Active Substance: FENTANYL
     Indication: Product used for unknown indication
     Dosage: 25 MICROGRAM ALTERNATING EVERY THREE DAYS
     Route: 048
     Dates: start: 20200425, end: 20200915

REACTIONS (3)
  - Hepatic failure [Fatal]
  - Malignant neoplasm progression [Unknown]
  - Off label use [Unknown]

NARRATIVE: CASE EVENT DATE: 20200305
